FAERS Safety Report 9197300 (Version 4)
Quarter: 2014Q3

REPORT INFORMATION
  Report Type: Report from Study
  Country: GB (occurrence: GB)
  Receive Date: 20130328
  Receipt Date: 20140715
  Transmission Date: 20150326
  Serious: Yes (Death, Hospitalization)
  Sender: FDA-Public Use
  Company Number: GB-ROCHE-1208039

PATIENT
  Age: 88 Year
  Sex: Female

DRUGS (15)
  1. CALCICHEW [Concomitant]
     Active Substance: CALCIUM CARBONATE
     Route: 065
     Dates: start: 20100103
  2. RANIBIZUMAB [Suspect]
     Active Substance: RANIBIZUMAB
     Indication: PRODUCT USED FOR UNKNOWN INDICATION
     Route: 050
     Dates: start: 20110211
  3. HYPROMELLOSE [Concomitant]
     Active Substance: HYPROMELLOSES
     Route: 065
     Dates: start: 2012
  4. AMOXICILLIN. [Concomitant]
     Active Substance: AMOXICILLIN
     Route: 065
     Dates: start: 20120802
  5. HYDROXOCOBALAMIN [Concomitant]
     Active Substance: HYDROXOCOBALAMIN
     Route: 065
     Dates: start: 20120121
  6. ASPIRIN. [Concomitant]
     Active Substance: ASPIRIN
     Route: 065
     Dates: start: 19990927
  7. RANIBIZUMAB [Suspect]
     Active Substance: RANIBIZUMAB
     Route: 050
     Dates: start: 20130208, end: 20130208
  8. AMLODIPINE [Concomitant]
     Active Substance: AMLODIPINE BESYLATE
     Route: 065
     Dates: start: 19950103
  9. RISEDRONATE SODIUM. [Concomitant]
     Active Substance: RISEDRONATE SODIUM
     Route: 065
     Dates: start: 20100105
  10. LEVOTHYROXINE SODIUM. [Concomitant]
     Active Substance: LEVOTHYROXINE SODIUM
     Route: 065
     Dates: start: 20120105
  11. FUROSEMIDE. [Concomitant]
     Active Substance: FUROSEMIDE
     Route: 065
     Dates: start: 20111230
  12. ETODOLAC. [Concomitant]
     Active Substance: ETODOLAC
     Route: 065
     Dates: start: 20091222
  13. HYDROXOCOBALAMIN [Concomitant]
     Active Substance: HYDROXOCOBALAMIN
     Route: 065
     Dates: start: 20110615
  14. ATENOLOL. [Concomitant]
     Active Substance: ATENOLOL
     Route: 065
     Dates: start: 19950816
  15. AMOXICILLIN. [Concomitant]
     Active Substance: AMOXICILLIN
     Route: 065
     Dates: start: 20120816

REACTIONS (3)
  - Lung neoplasm malignant [Fatal]
  - Lower respiratory tract infection [Unknown]
  - Malaise [Unknown]

NARRATIVE: CASE EVENT DATE: 201107
